FAERS Safety Report 8392659-1 (Version None)
Quarter: 2012Q2

REPORT INFORMATION
  Report Type: 
  Country: None (occurrence: None)
  Receive Date: 20120529
  Receipt Date: 20120514
  Transmission Date: 20120825
  Serious: Yes (Disabling)
  Sender: FDA-Public Use
  Company Number: GB-WATSON-2012-08592

PATIENT
  Age: 52 Year
  Sex: Female

DRUGS (4)
  1. QUETIAPINE [Concomitant]
     Indication: PRODUCT USED FOR UNKNOWN INDICATION
     Dosage: UNK UNK, UNKNOWN
     Route: 065
  2. LITHIUM CARBONATE [Concomitant]
     Indication: PRODUCT USED FOR UNKNOWN INDICATION
     Dosage: UNK UNK, UNKNOWN
     Route: 065
  3. CITALOPRAM HYDROBROMIDE [Suspect]
     Dosage: 60 MG, UNKNOWN, OVER THE PERIOD RANGING FROM 20MG TO 60MG, LATTERLY 20MG
     Route: 048
  4. CITALOPRAM HYDROBROMIDE [Suspect]
     Indication: BIPOLAR I DISORDER
     Dosage: 20 MG, UNKNOWN, OVER THE PERIOD RANGING FROM 20MG TO 60MG, LATTERLY 20MG
     Route: 048
     Dates: end: 20111101

REACTIONS (1)
  - DEAFNESS NEUROSENSORY [None]
